FAERS Safety Report 15223376 (Version 1)
Quarter: 2018Q3

REPORT INFORMATION
  Report Type: Spontaneous
  Country: US (occurrence: US)
  Receive Date: 20180731
  Receipt Date: 20180731
  Transmission Date: 20181010
  Serious: Yes (Death, Other)
  Sender: FDA-Public Use
  Company Number: US-FRESENIUS KABI-FK201808273

PATIENT
  Age: 82 Year
  Sex: Female

DRUGS (1)
  1. METHOTREXATE (MANUFACTURER UNKNOWN) [Suspect]
     Active Substance: METHOTREXATE
     Indication: RHEUMATOID ARTHRITIS
     Route: 065

REACTIONS (11)
  - Sepsis [Unknown]
  - Melaena [Unknown]
  - Haematemesis [Unknown]
  - Pancytopenia [Unknown]
  - Pneumonia klebsiella [Unknown]
  - Chronic kidney disease [Unknown]
  - Mouth ulceration [Unknown]
  - Septic shock [Fatal]
  - Respiratory failure [Fatal]
  - Anaemia macrocytic [Unknown]
  - Hypotension [Unknown]
